FAERS Safety Report 11894492 (Version 1)
Quarter: 2016Q1

REPORT INFORMATION
  Report Type: Spontaneous
  Country: US (occurrence: US)
  Receive Date: 20160107
  Receipt Date: 20160107
  Transmission Date: 20160526
  Serious: No
  Sender: FDA-Public Use
  Company Number: US-BAYER-2016-003356

PATIENT
  Age: 85 Year
  Sex: Female
  Weight: 86.17 kg

DRUGS (1)
  1. MIRALAX [Suspect]
     Active Substance: POLYETHYLENE GLYCOL 3350
     Indication: DIVERTICULITIS
     Dosage: 1 DF, QD
     Route: 048
     Dates: start: 2013, end: 20160105

REACTIONS (2)
  - Product use issue [None]
  - Joint swelling [None]
